FAERS Safety Report 6700496-6 (Version None)
Quarter: 2010Q2

REPORT INFORMATION
  Report Type: 
  Country: None (occurrence: None)
  Receive Date: 20100428
  Receipt Date: 20100423
  Transmission Date: 20101027
  Serious: Yes (Hospitalization)
  Sender: FDA-Public Use
  Company Number: A0784178A

PATIENT
  Age: 58 Year
  Sex: Female
  Weight: 77.3 kg

DRUGS (8)
  1. AVANDIA [Suspect]
     Dosage: 8MG PER DAY
     Route: 048
     Dates: start: 20040101, end: 20070622
  2. AVANDAMET [Suspect]
     Route: 048
     Dates: start: 20050314, end: 20050601
  3. ENALAPRIL MALEATE [Concomitant]
  4. METFORMIN [Concomitant]
  5. ZYRTEC [Concomitant]
     Dates: start: 20060901
  6. IMITREX [Concomitant]
  7. ASPIRIN [Concomitant]
  8. VASOTEC [Concomitant]

REACTIONS (2)
  - MYOCARDIAL INFARCTION [None]
  - MYOCARDIAL ISCHAEMIA [None]
